FAERS Safety Report 10420432 (Version 1)
Quarter: 2014Q3

REPORT INFORMATION
  Report Type: Spontaneous
  Country: US (occurrence: None)
  Receive Date: 20140701
  Receipt Date: 20140701
  Transmission Date: 20150326
  Serious: No
  Sender: FDA-Public Use
  Company Number: 1000066971

PATIENT
  Age: 91 Year
  Sex: Female

DRUGS (4)
  1. LINZESS [Suspect]
     Active Substance: LINACLOTIDE
     Route: 048
     Dates: start: 2013
  2. METFORMIN [Concomitant]
     Active Substance: METFORMIN HYDROCHLORIDE
  3. LEVOTHYROXINE (LEVOTHYROXINE SODIUM) [Concomitant]
  4. AMARYL [Concomitant]
     Active Substance: GLIMEPIRIDE

REACTIONS (4)
  - Abdominal distension [None]
  - Dyspnoea [None]
  - Diarrhoea [None]
  - Epigastric discomfort [None]

NARRATIVE: CASE EVENT DATE: 2013
